FAERS Safety Report 7156461-0 (Version None)
Quarter: 2010Q4

REPORT INFORMATION
  Report Type: 
  Country: None (occurrence: None)
  Receive Date: 20101214
  Receipt Date: 20091117
  Transmission Date: 20110411
  Serious: No
  Sender: FDA-Public Use
  Company Number: US-ASTRAZENECA-2009SE27145

PATIENT
  Age: 81 Year
  Sex: Female
  Weight: 72.6 kg

DRUGS (4)
  1. CRESTOR [Suspect]
     Indication: BLOOD CHOLESTEROL INCREASED
     Route: 048
     Dates: start: 20090805, end: 20091001
  2. SYNTHROID [Concomitant]
  3. SINGULAIR [Concomitant]
     Indication: ASTHMA
  4. ASPIRIN [Concomitant]

REACTIONS (1)
  - BLOOD CHOLESTEROL INCREASED [None]
